FAERS Safety Report 9110229 (Version 2)
Quarter: 2013Q1

REPORT INFORMATION
  Report Type: Report from Study
  Country: JP (occurrence: JP)
  Receive Date: 20130222
  Receipt Date: 20130313
  Transmission Date: 20140127
  Serious: Yes (Death, Hospitalization)
  Sender: FDA-Public Use
  Company Number: JP-JNJFOC-20130206421

PATIENT
  Age: 53 Year
  Sex: Female

DRUGS (15)
  1. ONEDURO [Suspect]
     Indication: CANCER PAIN
     Route: 062
     Dates: start: 20121202, end: 20130110
  2. ONEDURO [Suspect]
     Indication: CANCER PAIN
     Route: 062
     Dates: start: 20121129, end: 20121201
  3. OXINORM [Concomitant]
     Indication: CANCER PAIN
     Route: 048
     Dates: start: 20121202, end: 20121212
  4. MAGLAX [Concomitant]
     Indication: CONSTIPATION
     Route: 048
     Dates: end: 20130107
  5. GASMOTIN [Concomitant]
     Indication: CONSTIPATION
     Route: 048
     Dates: end: 20130107
  6. RINDERON [Concomitant]
     Indication: CANCER PAIN
     Route: 048
     Dates: end: 20130107
  7. INTRALIPOS [Concomitant]
     Indication: CANCER PAIN
     Dosage: AS NEEDED
     Route: 041
     Dates: end: 20121206
  8. OTSUKA MV [Concomitant]
     Indication: CANCER PAIN
     Route: 042
     Dates: end: 20130120
  9. GASTER [Concomitant]
     Indication: PROPHYLAXIS
     Route: 065
     Dates: end: 20130120
  10. KIDMIN [Concomitant]
     Indication: CANCER PAIN
     Route: 042
     Dates: end: 20130115
  11. HICALIQ [Concomitant]
     Indication: CANCER PAIN
     Route: 042
     Dates: end: 20130115
  12. ROPION [Concomitant]
     Indication: CANCER PAIN
     Route: 042
     Dates: end: 20121207
  13. MEDLENIK [Concomitant]
     Indication: CANCER PAIN
     Route: 042
     Dates: end: 20130120
  14. CEFMETAZOLE SODIUM [Concomitant]
     Indication: ILEUS
     Route: 065
     Dates: end: 20130120
  15. SANDOSTATIN [Concomitant]
     Indication: ABDOMINAL DISTENSION
     Route: 058
     Dates: start: 20121130, end: 20121202

REACTIONS (5)
  - Colon cancer [Fatal]
  - Vomiting [Recovered/Resolved]
  - Metastases to peritoneum [Not Recovered/Not Resolved]
  - Abdominal distension [Not Recovered/Not Resolved]
  - Hyponatraemia [Recovering/Resolving]
